FAERS Safety Report 7586350-9 (Version None)
Quarter: 2011Q2

REPORT INFORMATION
  Report Type: 
  Country: None (occurrence: None)
  Receive Date: 20110603
  Receipt Date: 20110502
  Transmission Date: 20111010
  Serious: Yes (Other)
  Sender: FDA-Public Use
  Company Number: 2011SP020128

PATIENT
  Age: 28 Year
  Sex: Male

DRUGS (2)
  1. HALOPERIDOL [Concomitant]
  2. SAPHRIS [Suspect]
     Indication: SCHIZOPHRENIA
     Dosage: 10 MG;QAM;SL
     Route: 060
     Dates: start: 20100801

REACTIONS (6)
  - DYSTONIA [None]
  - DROOLING [None]
  - TRISMUS [None]
  - INAPPROPRIATE SCHEDULE OF DRUG ADMINISTRATION [None]
  - DRUG DOSE OMISSION [None]
  - FRUSTRATION [None]
